FAERS Safety Report 6327069-1 (Version None)
Quarter: 2009Q3

REPORT INFORMATION
  Report Type: 
  Country: None (occurrence: None)
  Receive Date: 20090825
  Receipt Date: 20090819
  Transmission Date: 20100115
  Serious: Yes (Death, Hospitalization, Other)
  Sender: FDA-Public Use
  Company Number: US-CELGENEUS-163-21880-09070497

PATIENT
  Sex: Male

DRUGS (14)
  1. REVLIMID [Suspect]
     Indication: MANTLE CELL LYMPHOMA
     Route: 048
     Dates: start: 20090611, end: 20090101
  2. REVLIMID [Suspect]
     Route: 048
     Dates: start: 20090501
  3. LEVAQUIN [Concomitant]
     Route: 065
     Dates: start: 20090601
  4. LEVAQUIN [Concomitant]
  5. AUGMENTIN [Concomitant]
     Indication: TONSILLITIS
     Dosage: 875/25 MG
     Route: 065
     Dates: start: 20090601
  6. AUGMENTIN [Concomitant]
     Indication: PHARYNGITIS
  7. SOLU-MEDROL [Concomitant]
     Indication: TONSILLITIS
     Route: 065
     Dates: start: 20090601
  8. SOLU-MEDROL [Concomitant]
     Indication: PHARYNGITIS
  9. FLOMAX [Concomitant]
     Indication: DRUG USE FOR UNKNOWN INDICATION
     Route: 065
  10. PROSCAR [Concomitant]
     Indication: DRUG USE FOR UNKNOWN INDICATION
     Route: 065
  11. ASPIRIN [Concomitant]
     Indication: DRUG USE FOR UNKNOWN INDICATION
     Route: 065
  12. ACYCLOVIR [Concomitant]
     Indication: DRUG USE FOR UNKNOWN INDICATION
     Route: 065
  13. ACYCLOVIR [Concomitant]
     Route: 051
     Dates: start: 20090101
  14. FLORINEF [Concomitant]
     Indication: DRUG USE FOR UNKNOWN INDICATION
     Route: 065

REACTIONS (6)
  - CANDIDIASIS [None]
  - DEATH [None]
  - HERPES ZOSTER [None]
  - PHARYNGITIS [None]
  - PNEUMONIA ASPIRATION [None]
  - TONSILLITIS [None]
